FAERS Safety Report 6050188-4 (Version None)
Quarter: 2009Q1

REPORT INFORMATION
  Report Type: 
  Country: None (occurrence: None)
  Receive Date: 20090121
  Receipt Date: 20090109
  Transmission Date: 20090719
  Serious: Yes (Hospitalization)
  Sender: FDA-Public Use
  Company Number: 2009-189405-NL

PATIENT
  Age: 51 Year
  Sex: Male

DRUGS (8)
  1. MIRTAZAPINE [Suspect]
     Dosage: 30 MG,
     Dates: start: 20080627, end: 20080702
  2. OXCARBAZEPINE [Suspect]
     Dosage: 900 MG/1050 MG; ORAL
     Route: 048
     Dates: end: 20080627
  3. OXCARBAZEPINE [Suspect]
     Dosage: 900 MG/1050 MG; ORAL
     Route: 048
     Dates: start: 20080628
  4. RAMIPRIL [Suspect]
     Dosage: 10 MG, ORAL
     Route: 048
  5. HYDROCHLOROTHIAZIDE [Suspect]
     Dosage: 25 MG,
  6. PERAZINE [Suspect]
     Dosage: 100 MG, ORAL
     Route: 048
     Dates: start: 20080628
  7. METOPROLOL SUCCINATE [Concomitant]
  8. AMLODIPINE BESYLATE [Concomitant]

REACTIONS (5)
  - GRAND MAL CONVULSION [None]
  - HYPONATRAEMIA [None]
  - OXYGEN SATURATION DECREASED [None]
  - PERSONALITY DISORDER [None]
  - RESPIRATORY FAILURE [None]
